FAERS Safety Report 9555707 (Version 1)
Quarter: 2013Q3

REPORT INFORMATION
  Report Type: Spontaneous
  Country: US (occurrence: None)
  Receive Date: 20130724
  Receipt Date: 20130724
  Transmission Date: 20140515
  Serious: Yes (Other)
  Sender: FDA-Public Use
  Company Number: PHEH2013US006255

PATIENT
  Age: 53 Year
  Sex: Male

DRUGS (2)
  1. GILENYA (FINGOLIMOD) CAPSULE, 0.5MG [Suspect]
     Indication: MULTIPLE SCLEROSIS
     Route: 048
     Dates: start: 20120204
  2. INFLUENZA VACCINE (INFLUENZA VACCINE) (INFLUENZA VACCINE) [Suspect]
     Indication: IMMUNISATION
     Dates: start: 201210

REACTIONS (3)
  - Vaccination error [None]
  - Influenza [None]
  - Cough [None]
